FAERS Safety Report 8080357 (Version 5)
Quarter: 2017Q4

REPORT INFORMATION
  Report Type: Report from Study
  Country: IT (occurrence: IT)
  Receive Date: 20110808
  Receipt Date: 20171030
  Transmission Date: 20180321
  Serious: Yes (Death, Other)
  Sender: FDA-Public Use
  Company Number: IT-ROCHE-713400

PATIENT

DRUGS (3)
  1. BEVACIZUMAB. [Suspect]
     Active Substance: BEVACIZUMAB
     Indication: NON-SMALL CELL LUNG CANCER
     Dosage: DOSE(0; 2.5; 5, 7.5 AND 10 MG/KG)
     Route: 042
  2. CISPLATIN. [Suspect]
     Active Substance: CISPLATIN
     Indication: NON-SMALL CELL LUNG CANCER
     Dosage: DAYS 1-3
     Route: 042
  3. ETOPOSIDE. [Suspect]
     Active Substance: ETOPOSIDE
     Indication: NON-SMALL CELL LUNG CANCER
     Dosage: DAYS 1-15
     Route: 048

REACTIONS (26)
  - Cardiovascular disorder [Fatal]
  - Thrombocytopenia [Unknown]
  - Asthenia [Unknown]
  - Cognitive disorder [Unknown]
  - Pulmonary haemorrhage [Fatal]
  - Stomatitis [Unknown]
  - Sepsis [Unknown]
  - Thrombophlebitis [Unknown]
  - Anaemia [Unknown]
  - Leukopenia [Unknown]
  - Sudden death [Fatal]
  - Renal failure [Unknown]
  - Nausea [Unknown]
  - Haemoptysis [Unknown]
  - Monocyte count decreased [Unknown]
  - Infection [Unknown]
  - Pneumonia [Recovered/Resolved]
  - Pulmonary cavitation [Unknown]
  - Depression [Unknown]
  - Vena cava thrombosis [Unknown]
  - Vomiting [Unknown]
  - Differential white blood cell count abnormal [Unknown]
  - Mucosal inflammation [Unknown]
  - Pneumonia bacterial [Recovered/Resolved]
  - Pyrexia [Recovered/Resolved]
  - Neutrophil count decreased [Unknown]
